FAERS Safety Report 20563229 (Version 1)
Quarter: 2022Q1

REPORT INFORMATION
  Report Type: Spontaneous
  Country: ES (occurrence: ES)
  Receive Date: 20220308
  Receipt Date: 20220308
  Transmission Date: 20220423
  Serious: Yes (Other)
  Sender: FDA-Public Use
  Company Number: ES-SUN PHARMACEUTICAL INDUSTRIES LTD-2022R1-328216

PATIENT
  Age: 48 Year
  Sex: Female

DRUGS (3)
  1. TRIAMCINOLONE [Suspect]
     Active Substance: TRIAMCINOLONE
     Indication: Arthralgia
     Dosage: 40 MILLIGRAM
     Route: 065
  2. LOPINAVIR [Concomitant]
     Active Substance: LOPINAVIR
     Indication: HIV infection
     Dosage: KALETRA 200/50 MG 2 TAB
     Route: 065
  3. RITONAVIR [Concomitant]
     Active Substance: RITONAVIR
     Indication: HIV infection
     Dosage: KALETRA 200/50 MG 2 TAB
     Route: 065

REACTIONS (2)
  - Stomatitis [Unknown]
  - Cushing^s syndrome [Unknown]
